FAERS Safety Report 11873524 (Version 1)
Quarter: 2015Q4

REPORT INFORMATION
  Report Type: Spontaneous
  Country: US (occurrence: US)
  Receive Date: 20151228
  Receipt Date: 20151228
  Transmission Date: 20160305
  Serious: Yes (Hospitalization, Other)
  Sender: FDA-Public Use
  Company Number: ALCN2015US007931

PATIENT
  Age: 3 Year
  Sex: Male

DRUGS (1)
  1. PREDNISOLONE ACETATE. [Suspect]
     Active Substance: PREDNISOLONE ACETATE
     Indication: EYE SWELLING
     Route: 047

REACTIONS (4)
  - Periorbital abscess [Recovered/Resolved]
  - Conjunctival oedema [Recovered/Resolved]
  - Eye swelling [Recovered/Resolved]
  - Exophthalmos [Recovered/Resolved]
